FAERS Safety Report 5071654-4 (Version None)
Quarter: 2006Q3

REPORT INFORMATION
  Report Type: 
  Country: None (occurrence: None)
  Receive Date: 20060803
  Receipt Date: 20060803
  Transmission Date: 20061208
  Serious: No
  Sender: FDA-Public Use
  Company Number: None

PATIENT
  Age: 45 Year
  Sex: Female

DRUGS (1)
  1. CEPHALEXIN [Suspect]
     Indication: INFECTION
     Dosage: 500 MG BID PO [X 1 DOSE]
     Route: 048
     Dates: start: 20060619

REACTIONS (3)
  - RESPIRATORY DISORDER [None]
  - SWELLING [None]
  - URTICARIA [None]
